FAERS Safety Report 9262956 (Version 1)
Quarter: 2013Q2

REPORT INFORMATION
  Report Type: Report from Study
  Country: US (occurrence: US)
  Receive Date: 20130430
  Receipt Date: 20130430
  Transmission Date: 20140414
  Serious: Yes (Hospitalization)
  Sender: FDA-Public Use
  Company Number: US-BAYER-2013-018727

PATIENT
  Age: 89 Year
  Sex: Female

DRUGS (2)
  1. STIVARGA [Suspect]
     Indication: GASTROINTESTINAL STROMAL TUMOUR
     Dosage: 40 MG, 4 TABLETS DAILY
     Route: 048
     Dates: start: 20130103, end: 20130128
  2. STIVARGA [Suspect]
     Indication: GASTROINTESTINAL STROMAL TUMOUR
     Dosage: UNK
     Dates: start: 20130103, end: 20130109

REACTIONS (4)
  - Cerebrovascular accident [Not Recovered/Not Resolved]
  - Off label use [None]
  - Hemiparesis [Not Recovered/Not Resolved]
  - VIIth nerve paralysis [Not Recovered/Not Resolved]
